FAERS Safety Report 9931856 (Version 3)
Quarter: 2014Q1

REPORT INFORMATION
  Report Type: Report from Study
  Country: CA (occurrence: CA)
  Receive Date: 20140228
  Receipt Date: 20140326
  Transmission Date: 20141002
  Serious: Yes (Other)
  Sender: FDA-Public Use
  Company Number: CA-ROCHE-1347963

PATIENT
  Age: 40 Year
  Sex: Female
  Weight: 91.6 kg

DRUGS (6)
  1. ACTEMRA [Suspect]
     Indication: RHEUMATOID ARTHRITIS
     Route: 042
     Dates: start: 20140116
  2. VALSARTAN [Concomitant]
     Indication: BLOOD PRESSURE
  3. METHOTREXATE [Concomitant]
  4. PREDNISONE [Concomitant]
  5. ARAVA [Concomitant]
  6. FOLIC ACID [Concomitant]

REACTIONS (6)
  - Chest pain [Recovering/Resolving]
  - Menorrhagia [Unknown]
  - Infusion related reaction [Unknown]
  - Pain [Not Recovered/Not Resolved]
  - Anxiety [Unknown]
  - Fatigue [Recovered/Resolved]
